FAERS Safety Report 8359760-X (Version None)
Quarter: 2012Q2

REPORT INFORMATION
  Report Type: 
  Country: None (occurrence: None)
  Receive Date: 20120515
  Receipt Date: 20120508
  Transmission Date: 20120825
  Serious: Yes (Hospitalization, Other)
  Sender: FDA-Public Use
  Company Number: PHHY2012MX040686

PATIENT
  Sex: Female

DRUGS (5)
  1. CELEBREX [Concomitant]
     Dosage: UNK UKN, PRN
  2. CALCIUM CARBONATE [Concomitant]
     Dosage: UNK UKN, UNK
  3. ZOLEDRONOC ACID [Suspect]
     Indication: OSTEOPOROSIS
     Dosage: 5 MG/ 100 ML ONCE A YEAR
     Route: 042
     Dates: start: 20110506
  4. ASPIRIN [Concomitant]
     Dosage: ONCE A DAY SINCE ONE YEAR AGO
  5. LOSARTAN POTASSIUM [Concomitant]
     Dosage: 50 MG, BID

REACTIONS (7)
  - ROAD TRAFFIC ACCIDENT [None]
  - HEAD INJURY [None]
  - LIMB INJURY [None]
  - SKIN FISSURES [None]
  - DEHYDRATION [None]
  - FACE INJURY [None]
  - DIARRHOEA [None]
